FAERS Safety Report 4901854-2 (Version None)
Quarter: 2006Q1

REPORT INFORMATION
  Report Type: 
  Country: None (occurrence: None)
  Receive Date: 20060203
  Receipt Date: 20060203
  Transmission Date: 20060701
  Serious: Yes (Disabling, Other)
  Sender: FDA-Public Use
  Company Number: None

PATIENT
  Sex: Male
  Weight: 80 kg

DRUGS (14)
  1. ALENDRONATE SODIUM [Suspect]
     Indication: OSTEOPENIA
     Dosage: 35 MG WEEKLY PO
     Route: 048
     Dates: start: 20031205, end: 20050922
  2. ALENDRONATE SODIUM [Suspect]
     Indication: OSTEOPENIA
     Dosage: 70 MG WEEKLY PO
     Route: 048
     Dates: start: 20050922, end: 20060108
  3. ACETAMINOPHEN [Concomitant]
  4. BUPROPION [Concomitant]
  5. CLONAZEPAM [Concomitant]
  6. DEPAKOTE [Concomitant]
  7. MOTRIN [Concomitant]
  8. LITHIUM [Concomitant]
  9. ATIVAN [Concomitant]
  10. M.V.I. [Concomitant]
  11. PROPRANOLOL [Concomitant]
  12. SEROQUEL [Concomitant]
  13. ZOCOR [Concomitant]
  14. EFFEXOR XR [Concomitant]

REACTIONS (10)
  - ABDOMINAL DISTENSION [None]
  - ABDOMINAL PAIN LOWER [None]
  - CELLULITIS [None]
  - OSTEONECROSIS [None]
  - PARAESTHESIA [None]
  - PERIODONTITIS [None]
  - SWELLING FACE [None]
  - TOOTH ABSCESS [None]
  - TOOTH IMPACTED [None]
  - TRISMUS [None]
